FAERS Safety Report 10112359 (Version 1)
Quarter: 2014Q2

REPORT INFORMATION
  Report Type: Report from Study
  Country: CA (occurrence: CA)
  Receive Date: 20140425
  Receipt Date: 20140425
  Transmission Date: 20141212
  Serious: Yes (Other)
  Sender: FDA-Public Use
  Company Number: CA-ABBVIE-14P-028-1226997-00

PATIENT
  Sex: Male
  Weight: 74.91 kg

DRUGS (2)
  1. HUMIRA [Suspect]
     Indication: CROHN^S DISEASE
     Dates: start: 20100303
  2. IMODIUM [Concomitant]
     Indication: CROHN^S DISEASE
     Dosage: 5-6 TABLETS
     Route: 048
     Dates: start: 1994

REACTIONS (1)
  - Gastrointestinal disorder [Recovered/Resolved]
